FAERS Safety Report 7521431-7 (Version None)
Quarter: 2011Q2

REPORT INFORMATION
  Report Type: 
  Country: None (occurrence: None)
  Receive Date: 20110531
  Receipt Date: 20110523
  Transmission Date: 20111010
  Serious: Yes (Other)
  Sender: FDA-Public Use
  Company Number: 2011ST000129

PATIENT
  Age: 11 Year
  Sex: Female

DRUGS (2)
  1. MERREM [Concomitant]
  2. ABELCET [Suspect]
     Indication: ACUTE MYELOID LEUKAEMIA
     Dosage: 225 MG;QD;IV
     Route: 042
     Dates: start: 20110424, end: 20110424

REACTIONS (2)
  - TREMOR [None]
  - FEELING COLD [None]
